FAERS Safety Report 4410921-1 (Version None)
Quarter: 2004Q3

REPORT INFORMATION
  Report Type: 
  Country: None (occurrence: None)
  Receive Date: 20040728
  Receipt Date: 20040728
  Transmission Date: 20050211
  Serious: Yes (Other)
  Sender: FDA-Public Use
  Company Number: None

PATIENT
  Age: 12 Year
  Sex: Female
  Weight: 54.4316 kg

DRUGS (2)
  1. ADVAIR DISKUS 250/50 [Suspect]
     Indication: ASTHMA
     Dates: start: 20020301, end: 20040725
  2. ADVAIR DISKUS 100/50 [Suspect]

REACTIONS (3)
  - ABNORMAL BEHAVIOUR [None]
  - CIRCADIAN RHYTHM SLEEP DISORDER [None]
  - MOOD SWINGS [None]
